FAERS Safety Report 13484964 (Version 2)
Quarter: 2017Q3

REPORT INFORMATION
  Report Type: Spontaneous
  Country: US (occurrence: US)
  Receive Date: 20170426
  Receipt Date: 20170724
  Transmission Date: 20171127
  Serious: No
  Sender: FDA-Public Use
  Company Number: US-ASTRAZENECA-2017SE40573

PATIENT
  Age: 1006 Month
  Sex: Female
  Weight: 77.1 kg

DRUGS (2)
  1. XOLAIR SHOT [Concomitant]
     Indication: DYSPNOEA
     Dosage: MONTHLY
     Route: 058
     Dates: start: 2006
  2. PULMICORT FLEXHALER [Suspect]
     Active Substance: BUDESONIDE
     Indication: ASTHMA
     Dosage: 180 UG, 1 PUFF IN THE MORNING AND 1 PUFF IN THE EVENING
     Route: 055
     Dates: start: 2008

REACTIONS (4)
  - Dyspnoea [Unknown]
  - Body height decreased [Unknown]
  - Circumstance or information capable of leading to medication error [Unknown]
  - Peak expiratory flow rate decreased [Unknown]

NARRATIVE: CASE EVENT DATE: 201704
